FAERS Safety Report 12080223 (Version 12)
Quarter: 2016Q3

REPORT INFORMATION
  Report Type: Spontaneous
  Country: US (occurrence: US)
  Receive Date: 20160216
  Receipt Date: 20160809
  Transmission Date: 20161109
  Serious: Yes (Other)
  Sender: FDA-Public Use
  Company Number: US-PFIZER INC-2016049820

PATIENT
  Age: 74 Year
  Sex: Male
  Weight: 81.63 kg

DRUGS (10)
  1. SUTENT [Suspect]
     Active Substance: SUNITINIB MALATE
     Dosage: 50 MG, CYCLIC (28 DAYS ON/14 DAYS OFF)
     Route: 048
     Dates: start: 20160203
  2. NORVASC [Concomitant]
     Active Substance: AMLODIPINE BESYLATE
     Dosage: 5 MG, DAILY
     Route: 048
  3. ZOFRAN [Concomitant]
     Active Substance: ONDANSETRON HYDROCHLORIDE
     Indication: NAUSEA
     Dosage: 8 MG, AS NEEDED
     Route: 048
  4. SUTENT [Suspect]
     Active Substance: SUNITINIB MALATE
     Dosage: 25 MG, CYCLIC  (2 WEEKS ON/1 WEEK OFF)
  5. SUTENT [Suspect]
     Active Substance: SUNITINIB MALATE
     Dosage: 37.5 MG, CYCLIC (4 WEEKS ON AND 2 WEEKS OFF)
     Dates: start: 20160719
  6. VALIUM [Concomitant]
     Active Substance: DIAZEPAM
     Indication: ANXIETY
     Dosage: 5 MG, AS NEEDED
     Route: 048
  7. BABY ASPIRIN [Concomitant]
     Active Substance: ASPIRIN
     Dosage: UNK
  8. SUTENT [Suspect]
     Active Substance: SUNITINIB MALATE
     Indication: RENAL CANCER STAGE IV
     Dosage: 50 MG, CYCLIC (25 MG TWICE DAILY, 4 WEEK ON/2 WEEKS OFF)
     Route: 048
     Dates: start: 20160112
  9. ASPIRIN. [Concomitant]
     Active Substance: ASPIRIN
     Dosage: 81 MG, DAILY
     Route: 048
  10. SUTENT [Suspect]
     Active Substance: SUNITINIB MALATE
     Dosage: 25 MG, CYCLIC (28 DAYS ON/14 DAYS OFF)
     Route: 048

REACTIONS (18)
  - Fall [Unknown]
  - Decreased appetite [Unknown]
  - Rash [Unknown]
  - Blister [Unknown]
  - Laceration [Unknown]
  - Alopecia [Unknown]
  - Nausea [Not Recovered/Not Resolved]
  - Back pain [Recovered/Resolved]
  - Abdominal pain upper [Not Recovered/Not Resolved]
  - Concussion [Unknown]
  - Dysgeusia [Not Recovered/Not Resolved]
  - Insomnia [Not Recovered/Not Resolved]
  - Nervousness [Unknown]
  - Agitation [Unknown]
  - Dyspepsia [Not Recovered/Not Resolved]
  - Burning sensation [Unknown]
  - Weight decreased [Unknown]
  - Tremor [Unknown]
